FAERS Safety Report 21041281 (Version 1)
Quarter: 2022Q3

REPORT INFORMATION
  Report Type: Spontaneous
  Country: US (occurrence: US)
  Receive Date: 20220705
  Receipt Date: 20220705
  Transmission Date: 20221027
  Serious: Yes (Death, Other)
  Sender: FDA-Public Use
  Company Number: US-AMGEN-USASP2022111238

PATIENT

DRUGS (1)
  1. DARBEPOETIN ALFA [Suspect]
     Active Substance: DARBEPOETIN ALFA
     Indication: Anaemia
     Route: 065

REACTIONS (9)
  - Death [Fatal]
  - Renal failure [Fatal]
  - Cardiovascular disorder [Fatal]
  - Infection [Fatal]
  - Gastrointestinal disorder [Fatal]
  - Neoplasm malignant [Fatal]
  - Lung disorder [Fatal]
  - Accidental death [Fatal]
  - Adverse event [Unknown]
